FAERS Safety Report 25488853 (Version 1)
Quarter: 2025Q2

REPORT INFORMATION
  Report Type: Spontaneous
  Country: JP (occurrence: JP)
  Receive Date: 20250627
  Receipt Date: 20250627
  Transmission Date: 20250716
  Serious: Yes (Other)
  Sender: PFIZER
  Company Number: JP-PFIZER INC-PV202500075775

PATIENT
  Age: 76 Year
  Sex: Male

DRUGS (1)
  1. ELREXFIO [Suspect]
     Active Substance: ELRANATAMAB-BCMM
     Dates: start: 20250611

REACTIONS (2)
  - Upper limb fracture [Unknown]
  - Generalised oedema [Unknown]

NARRATIVE: CASE EVENT DATE: 20250618
